FAERS Safety Report 4975592-4 (Version None)
Quarter: 2006Q2

REPORT INFORMATION
  Report Type: 
  Country: None (occurrence: None)
  Receive Date: 20060411
  Receipt Date: 20060404
  Transmission Date: 20061013
  Serious: Yes (Disabling)
  Sender: FDA-Public Use
  Company Number: HQWYE182307MAR06

PATIENT
  Age: 58 Year
  Sex: Male

DRUGS (3)
  1. EFFEXOR XR [Suspect]
     Indication: DEPRESSION
     Dosage: SEE IMAGE, ORAL
     Route: 048
     Dates: start: 20060201, end: 20060201
  2. CELEXA [Suspect]
     Indication: DEPRESSION
     Dates: end: 20060101
  3. IMOVANE                         (ZOPICLONE) [Concomitant]

REACTIONS (1)
  - BLINDNESS UNILATERAL [None]
